FAERS Safety Report 6170952-0 (Version None)
Quarter: 2009Q2

REPORT INFORMATION
  Report Type: 
  Country: None (occurrence: None)
  Receive Date: 20090427
  Receipt Date: 20090427
  Transmission Date: 20091009
  Serious: Yes (Death)
  Sender: FDA-Public Use
  Company Number: None

PATIENT
  Age: 72 Year
  Sex: Male
  Weight: 86 kg

DRUGS (1)
  1. COLCHICINE [Suspect]
     Indication: GOUT
     Dosage: 1.2 MG DAILY PO
     Route: 048
     Dates: end: 20081113

REACTIONS (3)
  - PANCYTOPENIA [None]
  - RENAL FAILURE ACUTE [None]
  - SEPSIS [None]
